FAERS Safety Report 5892416-1 (Version None)
Quarter: 2008Q3

REPORT INFORMATION
  Report Type: 
  Country: None (occurrence: None)
  Receive Date: 20080923
  Receipt Date: 20080911
  Transmission Date: 20090109
  Serious: Yes (Other)
  Sender: FDA-Public Use
  Company Number: US-JNJFOC-20080903330

PATIENT
  Age: 70 Year
  Sex: Female
  Weight: 52.16 kg

DRUGS (3)
  1. EXTRA STRENGTH TYLENOL [Suspect]
     Route: 048
  2. EXTRA STRENGTH TYLENOL [Suspect]
     Indication: ARTHRITIS
     Route: 048
  3. WARFARIN SODIUM [Concomitant]
     Indication: THROMBOSIS

REACTIONS (1)
  - CHOKING [None]
